FAERS Safety Report 12209339 (Version 2)
Quarter: 2016Q3

REPORT INFORMATION
  Report Type: Report from Study
  Country: US (occurrence: US)
  Receive Date: 20160324
  Receipt Date: 20160802
  Transmission Date: 20161109
  Serious: Yes (Other)
  Sender: FDA-Public Use
  Company Number: US-HLSUS-2016-US-000151

PATIENT
  Age: 58 Year
  Sex: Female

DRUGS (1)
  1. CLOZAPINE. [Suspect]
     Active Substance: CLOZAPINE
     Indication: SCHIZOAFFECTIVE DISORDER
     Dosage: 400 MG QHS
     Route: 048
     Dates: start: 20141113, end: 20141208

REACTIONS (2)
  - White blood cell count decreased [Unknown]
  - Neutropenia [Unknown]

NARRATIVE: CASE EVENT DATE: 20141201
